FAERS Safety Report 19698903 (Version 1)
Quarter: 2021Q3

REPORT INFORMATION
  Report Type: Spontaneous
  Country: GB (occurrence: GB)
  Receive Date: 20210813
  Receipt Date: 20210813
  Transmission Date: 20211014
  Serious: Yes (Other)
  Sender: FDA-Public Use
  Company Number: GB-ORGANON-O2108GBR000455

PATIENT
  Age: 36 Year
  Sex: Female
  Weight: 68.03 kg

DRUGS (8)
  1. VITAMINS NOS [Concomitant]
     Active Substance: VITAMINS
     Dosage: UNK
  2. VITAMIN C [Concomitant]
     Active Substance: ASCORBIC ACID
     Dosage: UNK
  3. KALMS SLEEP [Concomitant]
     Dosage: UNK
  4. VITAMIN B NOS [Concomitant]
     Active Substance: VITAMIN B
     Dosage: UNK
  5. COD LIVER OIL [COD?LIVER OIL] [Concomitant]
     Dosage: UNK
  6. PROBIOTICS NOS [Concomitant]
     Active Substance: PROBIOTICS NOS
     Dosage: UNK
  7. MIRTAZAPINE. [Suspect]
     Active Substance: MIRTAZAPINE
     Indication: GRIEF REACTION
     Dosage: ^7.5MG ONE NIGHT AND NOTHING THE FOLLOWING (FOR THE NEXT TWO WEEKS)^
     Route: 048
     Dates: start: 20171208, end: 20210801
  8. VITAMIN D3 [Concomitant]
     Active Substance: CHOLECALCIFEROL
     Dosage: UNK

REACTIONS (4)
  - Pruritus [Not Recovered/Not Resolved]
  - Paraesthesia [Unknown]
  - Therapy change [Unknown]
  - Insomnia [Unknown]

NARRATIVE: CASE EVENT DATE: 20210725
